FAERS Safety Report 9974775 (Version 1)
Quarter: 2014Q1

REPORT INFORMATION
  Report Type: Report from Study
  Country: US (occurrence: US)
  Receive Date: 20140306
  Receipt Date: 20140306
  Transmission Date: 20141002
  Serious: No
  Sender: FDA-Public Use
  Company Number: US-ABBVIE-13P-163-1157686-00

PATIENT
  Age: 57 Year
  Sex: Female

DRUGS (12)
  1. HUMIRA [Suspect]
     Indication: CROHN^S DISEASE
     Dates: start: 201103
  2. VITAMIN D [Concomitant]
     Indication: HYPOVITAMINOSIS
  3. SEROQUEL [Concomitant]
     Indication: DEPRESSION
  4. METHOTREXATE [Concomitant]
     Indication: CROHN^S DISEASE
  5. METFORMIN [Concomitant]
     Indication: DIABETES MELLITUS
  6. LOVASTATIN [Concomitant]
     Indication: BLOOD CHOLESTEROL INCREASED
  7. HYDROXYZINE [Concomitant]
     Indication: ANXIETY
  8. HYDROCHLOROTHIAZIDE [Concomitant]
     Indication: FLUID RETENTION
  9. DOXEPIN [Concomitant]
     Indication: DEPRESSION
  10. DICYCLOMINE [Concomitant]
     Indication: CROHN^S DISEASE
  11. BENZTROPINE [Concomitant]
     Indication: MUSCLE SPASMS
  12. BUSPIRONE [Concomitant]
     Indication: ANXIETY

REACTIONS (4)
  - Fatigue [Not Recovered/Not Resolved]
  - Depression [Not Recovered/Not Resolved]
  - Crohn^s disease [Not Recovered/Not Resolved]
  - Dyspnoea [Not Recovered/Not Resolved]
